FAERS Safety Report 14949095 (Version 1)
Quarter: 2018Q2

REPORT INFORMATION
  Report Type: Spontaneous
  Country: None (occurrence: US)
  Receive Date: 20180529
  Receipt Date: 20180529
  Transmission Date: 20180711
  Serious: No
  Sender: FDA-Public Use
  Company Number: US-MERZ NORTH AMERICA, INC.-18MRZ-00280

PATIENT
  Sex: Female

DRUGS (1)
  1. XEOMIN [Suspect]
     Active Substance: INCOBOTULINUMTOXINA
     Indication: PRODUCT USED FOR UNKNOWN INDICATION
     Dosage: UNKNOWN DOSE

REACTIONS (6)
  - Incorrect route of drug administration [Recovered/Resolved]
  - Aphasia [Recovered/Resolved]
  - Muscular weakness [Not Recovered/Not Resolved]
  - Dizziness [Recovered/Resolved]
  - Tongue disorder [Recovered/Resolved]
  - Dysphagia [Recovered/Resolved]
